FAERS Safety Report 5851003-1 (Version None)
Quarter: 2008Q3

REPORT INFORMATION
  Report Type: 
  Country: None (occurrence: None)
  Receive Date: 20080820
  Receipt Date: 20080813
  Transmission Date: 20090109
  Serious: Yes (Hospitalization)
  Sender: FDA-Public Use
  Company Number: US-WATSON-2008-04896

PATIENT
  Sex: Female
  Weight: 88.435 kg

DRUGS (3)
  1. MICROGESTIN FE 1.5/30 [Suspect]
     Indication: VAGINAL HAEMORRHAGE
     Dosage: 1 TABLET, DAILY
     Route: 048
     Dates: start: 20080618, end: 20080712
  2. MICROGESTIN FE 1.5/30 [Suspect]
     Indication: UTERINE LEIOMYOMA
     Dosage: 1 TABLET, DAILY
     Route: 048
     Dates: start: 20080301, end: 20080617
  3. FERGON [Concomitant]
     Indication: HAEMOGLOBIN DECREASED
     Dosage: 325 MG, TID
     Route: 048
     Dates: start: 20080501

REACTIONS (5)
  - CELLULITIS [None]
  - CHEST PAIN [None]
  - DYSPNOEA [None]
  - PAIN IN EXTREMITY [None]
  - PULMONARY EMBOLISM [None]
